FAERS Safety Report 5205787-6 (Version None)
Quarter: 2007Q1

REPORT INFORMATION
  Report Type: 
  Country: None (occurrence: None)
  Receive Date: 20070108
  Receipt Date: 20070108
  Transmission Date: 20070707
  Serious: No
  Sender: FDA-Public Use
  Company Number: None

PATIENT
  Age: 47 Year
  Sex: Female

DRUGS (4)
  1. CYMBALTA [Suspect]
     Indication: MAJOR DEPRESSION
     Dosage: 60MG DAILY PO
     Route: 048
     Dates: start: 20061110, end: 20061206
  2. TOPAMAX [Concomitant]
  3. DILANTIN [Concomitant]
  4. CHLORAZEPATE [Concomitant]

REACTIONS (4)
  - AGITATION [None]
  - ANOREXIA [None]
  - INSOMNIA [None]
  - PANIC ATTACK [None]
